FAERS Safety Report 5140541-5 (Version None)
Quarter: 2006Q4

REPORT INFORMATION
  Report Type: 
  Country: None (occurrence: None)
  Receive Date: 20061031
  Receipt Date: 20061026
  Transmission Date: 20070319
  Serious: Yes (Hospitalization)
  Sender: FDA-Public Use
  Company Number: US-JNJFOC-20060600733

PATIENT
  Sex: Female
  Weight: 55.79 kg

DRUGS (6)
  1. FLEXERIL [Suspect]
     Indication: BACK PAIN
     Route: 048
  2. FLEXERIL [Suspect]
     Indication: MUSCLE SPASMS
     Route: 048
  3. MULTI-VITAMIN [Concomitant]
  4. GLUCOSAMINE CHRONDROITIN [Concomitant]
  5. CALCIUM [Concomitant]
  6. BLACK COHOSH [Concomitant]

REACTIONS (8)
  - AMNESIA [None]
  - BLOOD PRESSURE INCREASED [None]
  - BONE MARROW FAILURE [None]
  - CONFUSIONAL STATE [None]
  - DYSPNOEA [None]
  - HEART RATE INCREASED [None]
  - MUSCLE DISORDER [None]
  - SPLENOMEGALY [None]
